FAERS Safety Report 23701976 (Version 1)
Quarter: 2024Q2

REPORT INFORMATION
  Report Type: Spontaneous
  Country: IL (occurrence: None)
  Receive Date: 20240403
  Receipt Date: 20240403
  Transmission Date: 20240716
  Serious: Yes (Other)
  Sender: FDA-Public Use
  Company Number: IL-ROCHE-3534032

PATIENT
  Age: 42 Year
  Sex: Female

DRUGS (9)
  1. AVASTIN [Suspect]
     Active Substance: BEVACIZUMAB
     Indication: Squamous cell carcinoma of the cervix
     Dosage: SUBSEQUENT DOSE ON: APR/2022
     Route: 065
     Dates: start: 202106
  2. TAXOL [Suspect]
     Active Substance: PACLITAXEL
     Indication: Squamous cell carcinoma of the cervix
     Dosage: SUBSEQUENT DOSE ON: OCT/2022
     Route: 065
     Dates: start: 202106
  3. CARBOPLATIN [Suspect]
     Active Substance: CARBOPLATIN
     Indication: Squamous cell carcinoma of the cervix
     Dosage: SUBSEQUENT DOSE ON: OCT/2022
     Route: 065
     Dates: start: 202106
  4. RECLAST [Suspect]
     Active Substance: ZOLEDRONIC ACID
     Indication: Squamous cell carcinoma of the cervix
     Route: 065
  5. GEMZAR [Suspect]
     Active Substance: GEMCITABINE HYDROCHLORIDE
     Indication: Squamous cell carcinoma of the cervix
     Route: 065
     Dates: start: 202312
  6. ZOFRAN [Concomitant]
     Active Substance: ONDANSETRON HYDROCHLORIDE
     Route: 048
  7. IMODIUM [Concomitant]
     Active Substance: LOPERAMIDE HYDROCHLORIDE
     Route: 048
  8. PRAMINE [Concomitant]
     Active Substance: IMIPRAMINE HYDROCHLORIDE
     Route: 048
  9. ATENOLOL [Concomitant]
     Active Substance: ATENOLOL
     Route: 048

REACTIONS (4)
  - Neuropathy peripheral [Unknown]
  - Metastasis [Unknown]
  - Metastases to lung [Unknown]
  - Metastases to liver [Unknown]

NARRATIVE: CASE EVENT DATE: 20220901
